FAERS Safety Report 13052237 (Version 1)
Quarter: 2016Q4

REPORT INFORMATION
  Report Type: Spontaneous
  Country: CH (occurrence: CH)
  Receive Date: 20161221
  Receipt Date: 20161221
  Transmission Date: 20170207
  Serious: Yes (Death, Hospitalization)
  Sender: FDA-Public Use
  Company Number: CH-TEVA-720791ISR

PATIENT
  Age: 84 Year
  Sex: Female

DRUGS (11)
  1. MINALGIN TABLETTEN [Suspect]
     Active Substance: METAMIZOLE SODIUM
     Indication: PAIN
     Dosage: 2000 MILLIGRAM DAILY; STRENGTH: 500MG
     Route: 048
     Dates: start: 20160929, end: 20161027
  2. TRANSIPEG [Concomitant]
     Active Substance: POLYETHYLENE GLYCOL 3350
     Dosage: 1 DOSAGE FORMS DAILY;
     Route: 065
     Dates: end: 20161028
  3. VI-DE 3 [Concomitant]
     Active Substance: CHOLECALCIFEROL
     Dosage: 5 GTT DAILY; DROPS
     Route: 065
     Dates: end: 20161028
  4. CANSARTAN MEPHA [Suspect]
     Active Substance: CANDESARTAN CILEXETIL
     Indication: CARDIAC FAILURE
     Dosage: 8 MILLIGRAM DAILY; STRENGTH: 8MG
     Route: 048
     Dates: start: 201604, end: 20161027
  5. PANTOPRAZOL AXAPHARM [Suspect]
     Active Substance: PANTOPRAZOLE SODIUM
     Dosage: 20 MILLIGRAM DAILY; ENTERIC, STRENGTH: 20MG
     Route: 048
     Dates: start: 201606, end: 20161028
  6. METOLAZON [Suspect]
     Active Substance: METOLAZONE
     Indication: CARDIAC FAILURE
     Dosage: 5 MILLIGRAM DAILY; STRENGTH: 5MG
     Route: 048
     Dates: end: 20161028
  7. TORESEMID MEPHA [Suspect]
     Active Substance: TORSEMIDE
     Indication: CARDIAC FAILURE
     Dosage: 15 MILLIGRAM DAILY; STRENGTH: 5MG, LONG TERM
     Route: 048
     Dates: end: 20161028
  8. IMPORTAL [Concomitant]
     Active Substance: LACTITOL
     Route: 065
  9. METFORMIN ACTAVIS [Suspect]
     Active Substance: METFORMIN HYDROCHLORIDE
     Indication: TYPE 2 DIABETES MELLITUS
     Dosage: 500 MILLIGRAM DAILY; STRENGTH: 500MG
     Route: 048
     Dates: start: 201604, end: 20161028
  10. XARELTO [Suspect]
     Active Substance: RIVAROXABAN
     Indication: ATRIAL FIBRILLATION
     Dosage: 15 MILLIGRAM DAILY; STRENGTH: 15MG
     Route: 048
     Dates: start: 201606, end: 20161028
  11. METOPROLOL MEPHA ZOK [Suspect]
     Active Substance: METOPROLOL SUCCINATE
     Indication: ATRIAL FIBRILLATION
     Dosage: 50 MILLIGRAM DAILY; STRENGTH: 50MG
     Route: 048
     Dates: start: 20160624, end: 20161028

REACTIONS (8)
  - Bicytopenia [Fatal]
  - Agranulocytosis [Fatal]
  - Cardiogenic shock [Fatal]
  - Septic shock [Fatal]
  - Leukopenia [Fatal]
  - Thrombocytopenia [Fatal]
  - Pseudomonal bacteraemia [None]
  - Cardiac failure congestive [None]

NARRATIVE: CASE EVENT DATE: 201610
